FAERS Safety Report 7754593-7 (Version None)
Quarter: 2011Q3

REPORT INFORMATION
  Report Type: 
  Country: None (occurrence: None)
  Receive Date: 20110915
  Receipt Date: 20110907
  Transmission Date: 20111222
  Serious: Yes (Hospitalization)
  Sender: FDA-Public Use
  Company Number: US-MILLENNIUM PHARMACEUTICALS, INC.-2011-04091

PATIENT
  Age: 69 Year
  Sex: Male
  Weight: 79.909 kg

DRUGS (2)
  1. VELCADE [Suspect]
     Indication: MULTIPLE MYELOMA
     Dosage: 2 MG, CYCLIC
     Route: 042
     Dates: start: 20110426, end: 20110721
  2. DOXIL [Suspect]
     Indication: MULTIPLE MYELOMA
     Dosage: 10 MG, CYCLIC
     Route: 042
     Dates: start: 20110426, end: 20110721

REACTIONS (2)
  - CHEST PAIN [None]
  - BLOOD CREATININE INCREASED [None]
